FAERS Safety Report 7451378-6 (Version None)
Quarter: 2011Q2

REPORT INFORMATION
  Report Type: 
  Country: None (occurrence: None)
  Receive Date: 20110422
  Receipt Date: 20110408
  Transmission Date: 20111010
  Serious: Yes (Other)
  Sender: FDA-Public Use
  Company Number: 026633

PATIENT
  Sex: Male

DRUGS (2)
  1. COLESTIPOL HYDROCHLORIDE [Concomitant]
  2. CIMZIA [Suspect]
     Indication: CROHN'S DISEASE
     Dosage: 400MG 1X4 WEEKS SUBCUTANEOUS
     Route: 058
     Dates: start: 20100910

REACTIONS (4)
  - RASH [None]
  - ABDOMINAL ADHESIONS [None]
  - CHOLECYSTECTOMY [None]
  - DIARRHOEA [None]
